FAERS Safety Report 6771893-8 (Version None)
Quarter: 2010Q2

REPORT INFORMATION
  Report Type: 
  Country: None (occurrence: None)
  Receive Date: 20100616
  Receipt Date: 20100322
  Transmission Date: 20101027
  Serious: No
  Sender: FDA-Public Use
  Company Number: US-ASTRAZENECA-2010SE12560

PATIENT
  Age: 64 Year
  Sex: Female

DRUGS (3)
  1. ENTOCORT EC [Suspect]
     Route: 048
     Dates: start: 20090601
  2. ENTOCORT EC [Suspect]
     Route: 048
  3. ENTOCORT EC [Suspect]
     Route: 048

REACTIONS (1)
  - PSORIASIS [None]
